FAERS Safety Report 11323789 (Version 8)
Quarter: 2016Q4

REPORT INFORMATION
  Report Type: Report from Study
  Country: US (occurrence: US)
  Receive Date: 20150730
  Receipt Date: 20161123
  Transmission Date: 20170206
  Serious: Yes (Other)
  Sender: FDA-Public Use
  Company Number: US-009507513-1507USA010899

PATIENT

DRUGS (11)
  1. TELAPREVIR [Suspect]
     Active Substance: TELAPREVIR
     Indication: HEPATITIS C
     Dosage: UNK
     Route: 065
  2. RIBAVIRIN. [Suspect]
     Active Substance: RIBAVIRIN
     Indication: HEPATITIS C
     Dosage: UNK
     Route: 065
  3. PEGINTERFERON ALFA-2A [Suspect]
     Active Substance: PEGINTERFERON ALFA-2A
     Indication: HEPATITIS C
     Route: 065
  4. LEDIPASVIR [Suspect]
     Active Substance: LEDIPASVIR
     Indication: HEPATITIS C
     Route: 065
  5. OMBITASVIR [Suspect]
     Active Substance: OMBITASVIR
     Indication: HEPATITIS C
     Dosage: UNK
  6. SOFOSBUVIR [Suspect]
     Active Substance: SOFOSBUVIR
     Indication: HEPATITIS C
     Route: 065
  7. SIMEPREVIR [Suspect]
     Active Substance: SIMEPREVIR
     Indication: HEPATITIS C
     Dosage: UNK
     Route: 065
  8. RITONAVIR. [Suspect]
     Active Substance: RITONAVIR
     Indication: HEPATITIS C
     Dosage: UNK
  9. BOCEPREVIR [Suspect]
     Active Substance: BOCEPREVIR
     Indication: HEPATITIS C
     Route: 048
  10. PARITAPREVIR [Suspect]
     Active Substance: PARITAPREVIR
     Indication: HEPATITIS C
     Dosage: UNK
  11. DASABUVIR [Suspect]
     Active Substance: DASABUVIR
     Indication: HEPATITIS C
     Dosage: UNK

REACTIONS (3)
  - Thrombocytopenia [Unknown]
  - Anaemia [Unknown]
  - Neutropenia [Unknown]
